FAERS Safety Report 5759052-9 (Version None)
Quarter: 2008Q2

REPORT INFORMATION
  Report Type: 
  Country: None (occurrence: None)
  Receive Date: 20080602
  Receipt Date: 20080313
  Transmission Date: 20081010
  Serious: Yes (Death, Life-Threatening)
  Sender: FDA-Public Use
  Company Number: POMP-11168

PATIENT
  Age: 21 Month
  Sex: Male
  Weight: 12.5 kg

DRUGS (7)
  1. MYOZYME [Suspect]
     Indication: GLYCOGEN STORAGE DISEASE TYPE II
     Dosage: 20 MG/KG, Q2W, INTRAVENOUS; 40 MG/KG, Q2W, INTRAVENOUS
     Route: 042
     Dates: start: 20060420, end: 20060827
  2. MYOZYME [Suspect]
     Indication: GLYCOGEN STORAGE DISEASE TYPE II
     Dosage: 20 MG/KG, Q2W, INTRAVENOUS; 40 MG/KG, Q2W, INTRAVENOUS
     Route: 042
     Dates: start: 20060827, end: 20070111
  3. MYOZYME [Suspect]
     Indication: GLYCOGEN STORAGE DISEASE TYPE II
     Dosage: 20 MG/KG, Q2W, INTRAVENOUS; 40 MG/KG, Q2W, INTRAVENOUS
     Route: 042
     Dates: start: 20070111, end: 20070827
  4. MYOZYME [Suspect]
     Indication: GLYCOGEN STORAGE DISEASE TYPE II
     Dosage: 20 MG/KG, QW, INTRAVENOUS; 20 MG/KG, Q2W, INTRAVENOUS
     Route: 042
     Dates: start: 20060310, end: 20060401
  5. ACTOCORTINA (HYDROCORTISONE SODIUM PHOSPHATE) [Concomitant]
  6. SPIRONOLACTONE [Concomitant]
  7. CARVEDILOL [Concomitant]

REACTIONS (8)
  - ANAPHYLACTIC REACTION [None]
  - CARDIAC FAILURE [None]
  - GENERAL PHYSICAL HEALTH DETERIORATION [None]
  - INFUSION RELATED REACTION [None]
  - NASOPHARYNGITIS [None]
  - RESPIRATORY ARREST [None]
  - RESPIRATORY FAILURE [None]
  - RESPIRATORY TRACT INFECTION [None]
